FAERS Safety Report 4514484-1 (Version None)
Quarter: 2004Q4

REPORT INFORMATION
  Report Type: 
  Country: None (occurrence: None)
  Receive Date: 20040928
  Receipt Date: 20040716
  Transmission Date: 20050328
  Serious: No
  Sender: FDA-Public Use
  Company Number: 04P-163-0267259-00

PATIENT
  Age: 62 Year
  Sex: Female
  Weight: 58.514 kg

DRUGS (7)
  1. HUMIRA [Suspect]
     Indication: RHEUMATOID ARTHRITIS
     Dosage: SEE IMAGE
     Route: 058
     Dates: start: 20030101, end: 20040101
  2. HUMIRA [Suspect]
     Indication: RHEUMATOID ARTHRITIS
     Dosage: SEE IMAGE
     Route: 058
     Dates: start: 20040201, end: 20040401
  3. HUMIRA [Suspect]
     Indication: RHEUMATOID ARTHRITIS
     Dosage: SEE IMAGE
     Route: 058
     Dates: start: 20040401
  4. CELECOXIB [Concomitant]
  5. MULTI-VITAMINS [Concomitant]
  6. TOCOPHEROL CONCENTRATE CAP [Concomitant]
  7. CALCIUM WITH VITAMIN D [Concomitant]

REACTIONS (6)
  - CONDITION AGGRAVATED [None]
  - DRUG INEFFECTIVE [None]
  - DRY SKIN [None]
  - EYE PRURITUS [None]
  - RASH MACULAR [None]
  - SNEEZING [None]
